FAERS Safety Report 4689565-2 (Version None)
Quarter: 2005Q2

REPORT INFORMATION
  Report Type: 
  Country: None (occurrence: None)
  Receive Date: 20050608
  Receipt Date: 20050329
  Transmission Date: 20051028
  Serious: No
  Sender: FDA-Public Use
  Company Number: 2005-BP-05197BP

PATIENT
  Age: 56 Year
  Sex: Female
  Weight: 113.8 kg

DRUGS (1)
  1. SPIRIVA [Suspect]
     Indication: ASTHMA
     Dosage: 18 MCG (18 MCG, QD), IH
     Route: 055
     Dates: start: 20050110, end: 20050310

REACTIONS (1)
  - FOREIGN BODY ASPIRATION [None]
